FAERS Safety Report 7198990-X (Version None)
Quarter: 2010Q4

REPORT INFORMATION
  Report Type: 
  Country: None (occurrence: None)
  Receive Date: 20101228
  Receipt Date: 20101221
  Transmission Date: 20110411
  Serious: Yes (Hospitalization)
  Sender: FDA-Public Use
  Company Number: SE-BIOGENIDEC-2010BI038389

PATIENT
  Age: 47 Year
  Sex: Female

DRUGS (7)
  1. AVONEX [Suspect]
     Indication: MULTIPLE SCLEROSIS
     Route: 030
     Dates: start: 20100304, end: 20100811
  2. FORMOTEROL FUMARATE [Concomitant]
     Route: 055
  3. AERIUS [Concomitant]
     Route: 048
  4. ASMANEX TWISTHALER [Concomitant]
     Route: 055
  5. PULMICORT [Concomitant]
     Route: 055
  6. BRUFEN RETARD [Concomitant]
     Route: 048
  7. VENTOLIN [Concomitant]
     Route: 055

REACTIONS (1)
  - VENOUS THROMBOSIS LIMB [None]
